FAERS Safety Report 10763564 (Version 1)
Quarter: 2015Q1

REPORT INFORMATION
  Report Type: Spontaneous
  Country: US (occurrence: None)
  Receive Date: 20150129
  Receipt Date: 20150129
  Transmission Date: 20150721
  Serious: Yes (Hospitalization)
  Sender: FDA-Public Use
  Company Number: 2014014604

PATIENT
  Sex: Female

DRUGS (3)
  1. KEPPRA [Suspect]
     Active Substance: LEVETIRACETAM
     Indication: SEIZURE
     Dates: end: 2014
  2. TOPAMAX [Concomitant]
     Active Substance: TOPIRAMATE
  3. METHAMPHETAMINE (METAMFETAMINE HYDROCHLORIDE) [Concomitant]
     Active Substance: METHAMPHETAMINE HYDROCHLORIDE

REACTIONS (1)
  - Seizure [None]
